FAERS Safety Report 13699644 (Version 5)
Quarter: 2019Q2

REPORT INFORMATION
  Report Type: Report from Study
  Country: GB (occurrence: GB)
  Receive Date: 20170629
  Receipt Date: 20190404
  Transmission Date: 20190711
  Serious: Yes (Other)
  Sender: FDA-Public Use
  Company Number: GB-BRISTOL-MYERS SQUIBB COMPANY-BMS-2016-025304

PATIENT
  Sex: Female

DRUGS (1)
  1. ABATACEPT [Suspect]
     Active Substance: ABATACEPT
     Indication: RHEUMATOID ARTHRITIS
     Dosage: 125 MG, QWK
     Route: 058
     Dates: start: 20160323

REACTIONS (6)
  - H1N1 influenza [Unknown]
  - Infection [Unknown]
  - Product prescribing error [Unknown]
  - Knee operation [Unknown]
  - Full blood count decreased [Unknown]
  - Lower respiratory tract infection [Unknown]
